FAERS Safety Report 20050207 (Version 1)
Quarter: 2021Q4

REPORT INFORMATION
  Report Type: Spontaneous
  Country: ZA (occurrence: ZA)
  Receive Date: 20211109
  Receipt Date: 20211109
  Transmission Date: 20220303
  Serious: Yes (Hospitalization)
  Sender: FDA-Public Use
  Company Number: ZA-INSUD PHARMA-2110ZA02594

PATIENT

DRUGS (1)
  1. NUVESSA [Suspect]
     Active Substance: METRONIDAZOLE
     Indication: Product used for unknown indication
     Dosage: SELF-MEDICATION, UNKNOWN DOSE AND (PROLONGED) DURATION
     Route: 065

REACTIONS (10)
  - Toxic encephalopathy [Recovered/Resolved]
  - Cerebellar ataxia [Recovered/Resolved]
  - Balance disorder [Recovered/Resolved]
  - Eyelid ptosis [Recovered/Resolved]
  - Dysarthria [Recovered/Resolved]
  - Tremor [Recovered/Resolved]
  - Dysdiadochokinesis [Recovered/Resolved]
  - Hepatic cirrhosis [Recovered/Resolved]
  - Headache [Unknown]
  - Product use issue [Unknown]
